FAERS Safety Report 18650481 (Version 1)
Quarter: 2020Q4

REPORT INFORMATION
  Report Type: Other
  Country: ZA (occurrence: ZA)
  Receive Date: 20201223
  Receipt Date: 20201223
  Transmission Date: 20210114
  Serious: Yes (Hospitalization, Other)
  Sender: FDA-Public Use
  Company Number: ZA-SQUARE-000008

PATIENT
  Age: 28 Year
  Sex: Male

DRUGS (5)
  1. ACICLOVIR [Suspect]
     Active Substance: ACYCLOVIR
     Indication: HERPES SIMPLEX
     Dosage: 400 MG TWICE DAILY
  2. ACICLOVIR [Suspect]
     Active Substance: ACYCLOVIR
     Indication: HERPES SIMPLEX
     Dosage: 800 MG 5 TIMES DAILY
     Route: 048
  3. METHYLPREDNISOLONE. [Concomitant]
     Active Substance: METHYLPREDNISOLONE
     Indication: HERPES SIMPLEX
     Route: 042
  4. ZIDOVUDINE+LOPINAVIR + RITONAVIR [Concomitant]
     Indication: HIV INFECTION
  5. ACICLOVIR [Suspect]
     Active Substance: ACYCLOVIR
     Indication: HERPES SIMPLEX
     Dosage: 800 MG 5 TIMES DAILY
     Route: 048

REACTIONS (2)
  - Drug resistance [Unknown]
  - Condition aggravated [Recovering/Resolving]
